FAERS Safety Report 15843465 (Version 1)
Quarter: 2019Q1

REPORT INFORMATION
  Report Type: Spontaneous
  Country: US (occurrence: US)
  Receive Date: 20190118
  Receipt Date: 20190118
  Transmission Date: 20190417
  Serious: No
  Sender: FDA-Public Use
  Company Number: US-AMGEN-USASP2019005585

PATIENT
  Age: 70 Year
  Sex: Male

DRUGS (1)
  1. XGEVA [Suspect]
     Active Substance: DENOSUMAB
     Indication: PLASMA CELL MYELOMA
     Dosage: UNK
     Route: 065

REACTIONS (5)
  - Dysphagia [Recovering/Resolving]
  - Musculoskeletal pain [Recovering/Resolving]
  - Bedridden [Recovering/Resolving]
  - Arthritis [Recovering/Resolving]
  - Sleep disorder due to a general medical condition [Recovering/Resolving]
